FAERS Safety Report 4462662-2 (Version None)
Quarter: 2004Q3

REPORT INFORMATION
  Report Type: 
  Country: None (occurrence: None)
  Receive Date: 20040927
  Receipt Date: 20040927
  Transmission Date: 20050211
  Serious: Yes (Other)
  Sender: FDA-Public Use
  Company Number: None

PATIENT
  Sex: Male
  Weight: 110.2241 kg

DRUGS (1)
  1. PANGLOBULIN [Suspect]
     Indication: GUILLAIN-BARRE SYNDROME
     Dosage: 12 GM IV
     Route: 042
     Dates: start: 20040913

REACTIONS (4)
  - BLOOD PRESSURE INCREASED [None]
  - CHEST PAIN [None]
  - DYSPNOEA [None]
  - INFUSION RELATED REACTION [None]
